FAERS Safety Report 10254017 (Version 2)
Quarter: 2014Q2

REPORT INFORMATION
  Report Type: Spontaneous
  Country: US (occurrence: US)
  Receive Date: 20140623
  Receipt Date: 20140623
  Transmission Date: 20141212
  Serious: No
  Sender: FDA-Public Use
  Company Number: US-BAXTER-2014BAX028048

PATIENT
  Age: 59 Year
  Sex: Male

DRUGS (4)
  1. DIANEAL LOW CALCIUM [Suspect]
     Indication: PERITONEAL DIALYSIS
     Route: 033
     Dates: start: 20130730
  2. DIANEAL LOW CALCIUM [Suspect]
     Dosage: LAST FILL VOLUME
     Route: 033
     Dates: start: 20130730
  3. DIANEAL LOW CALCIUM [Suspect]
     Indication: PERITONEAL DIALYSIS
     Route: 033
     Dates: start: 20130730
  4. DIANEAL LOW CALCIUM [Suspect]
     Route: 033
     Dates: start: 20130730

REACTIONS (2)
  - Rash pruritic [Recovered/Resolved]
  - Catheter site dermatitis [Recovered/Resolved]
